FAERS Safety Report 16058485 (Version 1)
Quarter: 2019Q1

REPORT INFORMATION
  Report Type: Report from Study
  Country: GB (occurrence: GB)
  Receive Date: 20190311
  Receipt Date: 20190311
  Transmission Date: 20190418
  Serious: Yes (Hospitalization, Other)
  Sender: FDA-Public Use
  Company Number: GB-TEVA-2018-GB-947515

PATIENT
  Age: 73 Year
  Sex: Female
  Weight: 52.4 kg

DRUGS (33)
  1. VENETOCLAX. [Suspect]
     Active Substance: VENETOCLAX
     Indication: PLASMA CELL MYELOMA
     Dosage: 2 MILLIGRAM DAILY;
     Route: 048
     Dates: start: 20170502
  2. SALBUTAMOL [Concomitant]
     Active Substance: ALBUTEROL
     Indication: SEPSIS
     Route: 045
     Dates: start: 20170410
  3. SALBUTAMOL [Concomitant]
     Active Substance: ALBUTEROL
     Indication: ASTHMA
     Route: 048
     Dates: start: 2017
  4. ZOMETA [Concomitant]
     Active Substance: ZOLEDRONIC ACID
     Indication: PRODUCT USED FOR UNKNOWN INDICATION
     Route: 042
     Dates: start: 201312
  5. QUININE SULFATE. [Concomitant]
     Active Substance: QUININE SULFATE
     Indication: MUSCLE SPASMS
     Route: 065
  6. VALACYCLOVIR [Concomitant]
     Active Substance: VALACYCLOVIR HYDROCHLORIDE
     Indication: ANTIVIRAL PROPHYLAXIS
     Route: 065
  7. ALBUTEROL. [Concomitant]
     Active Substance: ALBUTEROL
     Indication: SEPSIS
     Route: 045
     Dates: start: 20170410
  8. DEXAMETHASONE. [Suspect]
     Active Substance: DEXAMETHASONE
     Dosage: ON DAYS 1,2,4,5,8,9,11 AND 12 OR EVERY CYCLE
     Route: 048
     Dates: start: 20170502
  9. VENETOCLAX. [Suspect]
     Active Substance: VENETOCLAX
     Route: 048
     Dates: start: 20170404, end: 20170409
  10. SALBUTAMOL [Concomitant]
     Active Substance: ALBUTEROL
     Indication: PRODUCT USED FOR UNKNOWN INDICATION
     Route: 048
     Dates: start: 2017
  11. DIFLAM [Concomitant]
     Indication: MOUTH ULCERATION
     Route: 065
  12. LOPERAMIDE [Concomitant]
     Active Substance: LOPERAMIDE
     Indication: DIARRHOEA
     Route: 065
  13. DEXAMETHASONE. [Suspect]
     Active Substance: DEXAMETHASONE
     Indication: PLASMA CELL MYELOMA
     Route: 048
     Dates: start: 20170404, end: 20170408
  14. ADCAL D3 [Concomitant]
     Active Substance: CALCIUM CARBONATE\CHOLECALCIFEROL
     Indication: PRODUCT USED FOR UNKNOWN INDICATION
     Route: 048
     Dates: start: 201701
  15. DEXAMETHASONE. [Suspect]
     Active Substance: DEXAMETHASONE
     Dosage: 20 MG. CYCLICALLY. CYCLE 1-9 DATS. 1,2,4,5,8,9,11,12/21 DAY CYCLE;CYCLE 9+:DAYS 1,2,8,9,15,16,22,23
     Route: 048
     Dates: start: 20181228
  16. ACICLOVIR [Concomitant]
     Active Substance: ACYCLOVIR
     Indication: PRODUCT USED FOR UNKNOWN INDICATION
     Dosage: 400 MILLIGRAM DAILY;
     Route: 048
     Dates: start: 20170403
  17. MAGNESIUM [Concomitant]
     Active Substance: MAGNESIUM
     Indication: MUSCLE SPASMS
     Route: 065
  18. BORTEZOMIB. [Suspect]
     Active Substance: BORTEZOMIB
     Route: 058
     Dates: start: 20170404, end: 20170407
  19. BORTEZOMIB. [Suspect]
     Active Substance: BORTEZOMIB
     Dosage: 1.3 MG/M2 (1 IN 1 D);CYCLE 1-8 1,4,8,11 OF 21 DAY CYCLE. CYCLE 9 AND DAYS BEYOND 1,8,15,22 OF 35 DAY
     Route: 058
     Dates: start: 20181228
  20. CORSODYL [Suspect]
     Active Substance: CHLORHEXIDINE GLUCONATE
     Indication: MOUTH ULCERATION
     Route: 065
  21. VENTOLIN [Concomitant]
     Active Substance: ALBUTEROL SULFATE
     Indication: PRODUCT USED FOR UNKNOWN INDICATION
     Route: 065
     Dates: start: 1988
  22. BONJELA [Concomitant]
     Active Substance: CETALKONIUM CHLORIDE\CHOLINE SALICYLATE\MENTHOL
     Indication: MOUTH ULCERATION
  23. DULOXETINE. [Concomitant]
     Active Substance: DULOXETINE
     Indication: PAIN IN EXTREMITY
     Route: 065
  24. BORTEZOMIB. [Suspect]
     Active Substance: BORTEZOMIB
     Indication: PLASMA CELL MYELOMA
     Dosage: 2 MILLIGRAM DAILY;
     Route: 058
     Dates: start: 20170502
  25. BORTEZOMIB. [Suspect]
     Active Substance: BORTEZOMIB
     Dosage: 1.3 MG/M2 (1 IN 1 D);CYCLE 1-8 1,4,8,11 OF 21 DAY CYCLE. CYCLE 9 AND DAYS BEYOND 1,8,15,22 OF 35 DAY
     Route: 058
     Dates: start: 20170404, end: 20181214
  26. VENTOLIN [Concomitant]
     Active Substance: ALBUTEROL SULFATE
     Indication: ASTHMA
     Dosage: 2 DOSAGE FORMS DAILY;
     Route: 048
     Dates: start: 1988
  27. ALBUTEROL. [Concomitant]
     Active Substance: ALBUTEROL
     Indication: ASTHMA
     Route: 065
     Dates: start: 1997
  28. CETIRIZINE [Concomitant]
     Active Substance: CETIRIZINE HYDROCHLORIDE
     Indication: SEASONAL ALLERGY
     Route: 065
  29. BECLOMETASONE [Concomitant]
     Active Substance: BECLOMETHASONE DIPROPIONATE
     Indication: PRODUCT USED FOR UNKNOWN INDICATION
     Dosage: 400 MILLIGRAM DAILY;
     Route: 048
     Dates: start: 1997
  30. OMEPRAZOLE. [Concomitant]
     Active Substance: OMEPRAZOLE
     Indication: PRODUCT USED FOR UNKNOWN INDICATION
     Dosage: 20 MILLIGRAM DAILY;
     Route: 048
     Dates: start: 201609
  31. PARACETAMOL [Concomitant]
     Active Substance: ACETAMINOPHEN
     Indication: SEPSIS
     Dosage: DOSAGE FORM: UNSPECIFIED
     Route: 048
     Dates: start: 20170410
  32. GAVISCON [Concomitant]
     Active Substance: ALUMINUM HYDROXIDE\MAGNESIUM CARBONATE
     Indication: FLATULENCE
     Route: 065
  33. ALBUTEROL. [Concomitant]
     Active Substance: ALBUTEROL
     Route: 048
     Dates: start: 2017

REACTIONS (3)
  - Sepsis [Recovered/Resolved]
  - Lower respiratory tract infection [Recovered/Resolved]
  - Pneumonia [Recovered/Resolved with Sequelae]

NARRATIVE: CASE EVENT DATE: 20170410
